FAERS Safety Report 7297708-X (Version None)
Quarter: 2011Q1

REPORT INFORMATION
  Report Type: 
  Country: None (occurrence: None)
  Receive Date: 20110217
  Receipt Date: 20110209
  Transmission Date: 20110831
  Serious: Yes (Other)
  Sender: FDA-Public Use
  Company Number: US-ASTRAZENECA-2007UW05170

PATIENT
  Age: 50 Year
  Sex: Female
  Weight: 108 kg

DRUGS (21)
  1. ATENOLOL [Concomitant]
     Indication: HYPERTENSION
     Route: 048
     Dates: start: 20060302
  2. PROTONIX [Concomitant]
     Indication: GASTROOESOPHAGEAL REFLUX DISEASE
     Route: 048
     Dates: start: 20060302
  3. CLONAZEPAM [Concomitant]
     Indication: BIPOLAR DISORDER
     Dates: start: 20050805
  4. CYMBALTA [Concomitant]
     Dates: start: 20060105
  5. PROZAC [Concomitant]
     Dates: start: 20050101
  6. CLONIDINE [Concomitant]
     Indication: HYPERTENSION
     Route: 048
     Dates: start: 20060302
  7. HYZAAR [Concomitant]
     Indication: HYPERTENSION
     Dosage: 100/25 MG ONCE A DAY
     Route: 048
     Dates: start: 20060302
  8. FLEXERIL [Concomitant]
     Indication: OSTEOARTHRITIS
     Dates: start: 20060302
  9. CITALOPRAM [Concomitant]
     Dates: start: 20050110
  10. BUSPRONE [Concomitant]
     Dates: start: 20050101
  11. NAPROXEN [Concomitant]
     Indication: OSTEOARTHRITIS
     Dates: start: 20060302
  12. SEROQUEL [Suspect]
     Route: 048
     Dates: start: 20060105, end: 20061120
  13. DILTIA XT [Concomitant]
     Indication: HYPERTENSION
     Route: 048
     Dates: start: 20060302
  14. ADAVAN [Concomitant]
     Indication: BIPOLAR DISORDER
  15. PAXIL [Concomitant]
     Indication: DEPRESSION
  16. SEROQUEL [Suspect]
     Indication: DEPRESSION
     Dosage: 100 TO 300 MG
     Route: 048
     Dates: start: 20060105
  17. ASPIRIN [Concomitant]
     Indication: TRANSIENT ISCHAEMIC ATTACK
     Dates: start: 20060201
  18. PLAVIX [Concomitant]
     Indication: TRANSIENT ISCHAEMIC ATTACK
     Dates: start: 20060201
  19. NORTRIPTYLINE [Concomitant]
     Dates: start: 20041220
  20. CLONAZEPAM [Concomitant]
     Indication: DEPRESSION
     Dates: start: 20050805
  21. HYDROXYZINE PAM [Concomitant]
     Dates: start: 20050320

REACTIONS (4)
  - MYOCARDIAL INFARCTION [None]
  - BLOOD TRIGLYCERIDES INCREASED [None]
  - TRANSIENT ISCHAEMIC ATTACK [None]
  - TYPE 2 DIABETES MELLITUS [None]
